FAERS Safety Report 18614079 (Version 3)
Quarter: 2021Q1

REPORT INFORMATION
  Report Type: Spontaneous
  Country: DE (occurrence: DE)
  Receive Date: 20201214
  Receipt Date: 20210129
  Transmission Date: 20210419
  Serious: Yes (Other)
  Sender: FDA-Public Use
  Company Number: DE-BAUSCH-BL-2020-035709

PATIENT
  Age: 60 Year
  Sex: Female
  Weight: 63 kg

DRUGS (43)
  1. DEXAMETHASONE. [Suspect]
     Active Substance: DEXAMETHASONE
     Dosage: 1 DOSAGE FORM, SINGLE, 1 TOTAL
     Route: 014
     Dates: start: 20181016, end: 20181016
  2. DEXAMETHASONE. [Suspect]
     Active Substance: DEXAMETHASONE
     Dosage: 1 DOSAGE FORM, SINGLE, 1 TOTAL
     Route: 014
     Dates: start: 20181127, end: 20181127
  3. LIPOTALON [Suspect]
     Active Substance: DEXAMETHASONE PALMITATE
     Dosage: 1 DOSAGE FORM, SINGLE; BOTH KNEES AND FOOT, 1 TOTAL
     Route: 014
     Dates: start: 20181127, end: 20181127
  4. HYALURON (HYALURONATE SODIUM) [Concomitant]
     Dosage: 1 DOSAGE FORM, SINGLE; RIGHT KNEE, 1 TOTAL
     Route: 014
     Dates: start: 20181106, end: 20181106
  5. DEXAMETHASONE. [Suspect]
     Active Substance: DEXAMETHASONE
     Indication: EPICONDYLITIS
     Dosage: 1 DOSAGE FORM, SINGLE, 1 TOTAL
     Route: 014
     Dates: start: 20181120, end: 20181120
  6. DEXAMETHASONE. [Suspect]
     Active Substance: DEXAMETHASONE
     Dosage: 1 DOSAGE FORM, SINGLE, 1 TOTAL
     Route: 014
     Dates: start: 20181102, end: 20181102
  7. LIPOTALON [Suspect]
     Active Substance: DEXAMETHASONE PALMITATE
     Dosage: 1 DOSAGE FORM, SINGLE; LEFT KNEE, 1 TOTAL
     Route: 014
     Dates: start: 20181130, end: 20181130
  8. MEAVERIN (MEPIVACAINE HYDROCHLORIDE) [Concomitant]
     Dosage: 1 DOSAGE FORM, SINGLE; LEFT KNEE,1 TOTAL
     Route: 014
     Dates: start: 20181130, end: 20181130
  9. DICLOFENAC [Concomitant]
     Active Substance: DICLOFENAC
     Dosage: 1 MILLILITER, SINGLE, 1 TOTAL
     Route: 014
     Dates: start: 20181106, end: 20181106
  10. DEXAMETHASONE. [Suspect]
     Active Substance: DEXAMETHASONE
     Dosage: 1 DOSAGE FORM, SINGLE, 1 TOTAL
     Route: 014
     Dates: start: 20181113, end: 20181113
  11. LIPOTALON [Suspect]
     Active Substance: DEXAMETHASONE PALMITATE
     Indication: EPICONDYLITIS
     Dosage: 1 DOSAGE FORM, SINGLE; BOTH KNEES AND FOOT, 1 TOTAL
     Route: 014
     Dates: start: 20181204, end: 20181204
  12. LIPOTALON [Suspect]
     Active Substance: DEXAMETHASONE PALMITATE
     Dosage: 1 DOSAGE FORM, SINGLE; LEFT ELBOW, 1 TOTAL
     Route: 014
     Dates: start: 20181016, end: 20181016
  13. PREDNISOLONE. [Suspect]
     Active Substance: PREDNISOLONE
     Route: 048
     Dates: start: 2018
  14. HYALURON (HYALURONATE SODIUM) [Concomitant]
     Indication: PRODUCT USED FOR UNKNOWN INDICATION
     Dosage: 1 DOSAGE FORM, SINGLE; RIGHT KNEE, 1 TOTAL
     Route: 014
     Dates: start: 20181120, end: 20181120
  15. MEAVERIN (MEPIVACAINE HYDROCHLORIDE) [Concomitant]
     Dosage: 1 DOSAGE FORM, SINGLE; RIGHT KNEE AND FOOT, 1 TOTAL
     Route: 014
     Dates: start: 20181120, end: 20181120
  16. LIPOTALON [Suspect]
     Active Substance: DEXAMETHASONE PALMITATE
     Dosage: 1 DOSAGE FORM, SINGLE; RIGHT KNEE AND FOOT, 1 TOTAL
     Route: 014
     Dates: start: 20181113, end: 20181113
  17. MEAVERIN (MEPIVACAINE HYDROCHLORIDE) [Concomitant]
     Dosage: 1 DOSAGE FORM, SINGLE; BOTH KNEES AND FOOT, 1 TOTAL
     Route: 014
     Dates: start: 20181204, end: 20181204
  18. MEAVERIN (MEPIVACAINE HYDROCHLORIDE) [Concomitant]
     Dosage: 1 DOSAGE FORM, SINGLE; LEFT ELBOW, 1 TOTAL
     Route: 014
     Dates: start: 20181016, end: 20181016
  19. DICLOFENAC [Concomitant]
     Active Substance: DICLOFENAC
     Dosage: 1 MILLILITER, SINGLE, 1 TOTAL
     Route: 014
     Dates: start: 20181120, end: 20181120
  20. DEXAMETHASONE. [Suspect]
     Active Substance: DEXAMETHASONE
     Indication: ARTHRALGIA
     Dosage: 1 DOSAGE FORM, SINGLE, 1 TOTAL
     Route: 014
     Dates: start: 20181019, end: 20181019
  21. DEXAMETHASONE. [Suspect]
     Active Substance: DEXAMETHASONE
     Dosage: 1 DOSAGE FORM, SINGLE, 1 TOTAL
     Route: 014
     Dates: start: 20181130, end: 20181130
  22. LIPOTALON [Suspect]
     Active Substance: DEXAMETHASONE PALMITATE
     Dosage: 1 DOSAGE FORM, SINGLE; RIGHT KNEE, 1 TOTAL
     Route: 014
     Dates: start: 20181106, end: 20181106
  23. PREDNISOLONE. [Suspect]
     Active Substance: PREDNISOLONE
     Indication: ARTHRALGIA
     Dosage: 30 *20 MG
     Route: 048
     Dates: start: 20181204, end: 20181215
  24. DICLOFENAC [Concomitant]
     Active Substance: DICLOFENAC
     Indication: PRODUCT USED FOR UNKNOWN INDICATION
     Dosage: 1 MILLILITER, SINGLE, 1 TOTAL
     Route: 014
     Dates: start: 20181016, end: 20181016
  25. LIPOTALON [Suspect]
     Active Substance: DEXAMETHASONE PALMITATE
     Dosage: 1 DOSAGE FORM, SINGLE; RIGHT KNEE, 1 TOTAL
     Route: 014
     Dates: start: 20181102, end: 20181102
  26. PREDNISOLONE. [Suspect]
     Active Substance: PREDNISOLONE
     Route: 048
     Dates: start: 201810
  27. HYALURON (HYALURONATE SODIUM) [Concomitant]
     Dosage: 1 DOSAGE FORM, SINGLE; RIGHT KNEE, 1 TOTAL
     Route: 014
     Dates: start: 20181113, end: 20181113
  28. MEAVERIN (MEPIVACAINE HYDROCHLORIDE) [Concomitant]
     Dosage: 1 DOSAGE FORM, SINGLE; BOTH KNEES AND FOOT, 1 TOTAL
     Route: 014
     Dates: start: 20181127, end: 20181127
  29. DICLOFENAC [Concomitant]
     Active Substance: DICLOFENAC
     Dosage: 1 MILLILITER, SINGLE, 1 TOTAL
     Route: 014
     Dates: start: 20181130, end: 20181130
  30. DICLOFENAC [Concomitant]
     Active Substance: DICLOFENAC
     Dosage: 1 MILLILITER, SINGLE, 1 TOTAL
     Route: 014
     Dates: start: 20181102, end: 20181102
  31. DICLOFENAC [Concomitant]
     Active Substance: DICLOFENAC
     Dosage: 1 MILLILITER, SINGLE, 1 TOTAL
     Route: 014
     Dates: start: 20181113, end: 20181113
  32. LIPOTALON [Suspect]
     Active Substance: DEXAMETHASONE PALMITATE
     Indication: ARTHRALGIA
     Dosage: 1 DOSAGE FORM, SINGLE; RIGHT KNEE AND FOOT, 4MG INJECTION SOLUTION, 1 TOTAL
     Route: 014
     Dates: start: 20181120, end: 20181120
  33. LIPOTALON [Suspect]
     Active Substance: DEXAMETHASONE PALMITATE
     Dosage: 1 DOSAGE FORM, SINGLE; LEFT ELBOW, 1 TOTAL
     Route: 014
     Dates: start: 20181019, end: 20181019
  34. MEAVERIN (MEPIVACAINE HYDROCHLORIDE) [Concomitant]
     Indication: PRODUCT USED FOR UNKNOWN INDICATION
     Dosage: 1 DOSAGE FORM, SINGLE; RIGHT KNEE AND FOOT, 1 TOTAL
     Route: 014
     Dates: start: 20181113, end: 20181113
  35. MEAVERIN (MEPIVACAINE HYDROCHLORIDE) [Concomitant]
     Dosage: 1 DOSAGE FORM, SINGLE; RIGHT KNEE
     Route: 014
     Dates: start: 20181102, end: 20181102
  36. DICLOFENAC [Concomitant]
     Active Substance: DICLOFENAC
     Dosage: 1 MILLILITER, SINGLE, 1 TOTAL
     Route: 014
     Dates: start: 20181019, end: 20181019
  37. DEXAMETHASONE. [Suspect]
     Active Substance: DEXAMETHASONE
     Dosage: 1 DOSAGE FORM, SINGLE, 1 TOTAL
     Route: 014
     Dates: start: 20181106, end: 20181106
  38. PREDNISOLONE. [Suspect]
     Active Substance: PREDNISOLONE
     Indication: EPICONDYLITIS
     Route: 048
     Dates: start: 201810
  39. HYALURON (HYALURONATE SODIUM) [Concomitant]
     Dosage: 1 DOSAGE FORM, SINGLE; RIGHT KNEE 1 TOTAL
     Route: 014
     Dates: start: 20181127, end: 20181127
  40. HYALURON (HYALURONATE SODIUM) [Concomitant]
     Dosage: 1 DOSAGE FORM, SINGLE; BOTH KNEES,1 TOTAL
     Route: 014
     Dates: start: 20181204, end: 20181204
  41. MEAVERIN (MEPIVACAINE HYDROCHLORIDE) [Concomitant]
     Dosage: 1 DOSAGE FORM, SINGLE; LEFT ELBOW, 1 TOTAL
     Route: 014
     Dates: start: 20181019, end: 20181019
  42. MEAVERIN (MEPIVACAINE HYDROCHLORIDE) [Concomitant]
     Dosage: 1 DOSAGE FORM, SINGLE; RIGHT KNEE, TOTAL
     Route: 014
     Dates: start: 20181106, end: 20181106
  43. DICLOFENAC [Concomitant]
     Active Substance: DICLOFENAC
     Dosage: 1 MILLILITER, SINGLE, 1 TOTAL
     Route: 014
     Dates: start: 20181127, end: 20181127

REACTIONS (65)
  - Cushing^s syndrome [Not Recovered/Not Resolved]
  - Dizziness [Unknown]
  - Sleep disorder [Recovered/Resolved]
  - Balance disorder [Not Recovered/Not Resolved]
  - Nausea [Recovered/Resolved]
  - Impaired healing [Unknown]
  - Mental disorder [Recovered/Resolved]
  - Pruritus [Unknown]
  - Osteoporosis [Unknown]
  - Inappropriate schedule of product administration [Not Recovered/Not Resolved]
  - Seizure [Unknown]
  - Osteonecrosis [Unknown]
  - Pelvic floor muscle weakness [Not Recovered/Not Resolved]
  - Fatigue [Unknown]
  - Thirst [Recovered/Resolved]
  - Oedema mucosal [Recovered/Resolved]
  - Hallucination [Not Recovered/Not Resolved]
  - Blood glucose increased [Recovered/Resolved]
  - Fluid retention [Not Recovered/Not Resolved]
  - Intracranial pressure increased [Unknown]
  - Polycythaemia [Recovered/Resolved]
  - Arthropathy [Unknown]
  - Vision blurred [Unknown]
  - Aggression [Recovered/Resolved]
  - Abdominal distension [Unknown]
  - Lymphopenia [Recovered/Resolved]
  - Platelet count increased [Recovered/Resolved]
  - Abdominal discomfort [Unknown]
  - Cystocele [Not Recovered/Not Resolved]
  - Adrenal insufficiency [Unknown]
  - Joint instability [Not Recovered/Not Resolved]
  - Weight increased [Unknown]
  - Hyperaesthesia [Unknown]
  - Blood potassium decreased [Recovered/Resolved]
  - Burning sensation [Unknown]
  - Skin atrophy [Unknown]
  - Arthralgia [Not Recovered/Not Resolved]
  - Muscular weakness [Recovered/Resolved]
  - Blood pressure increased [Recovered/Resolved]
  - Emphysema [Recovered/Resolved]
  - Application site pain [Not Recovered/Not Resolved]
  - Leukocytosis [Recovered/Resolved]
  - Muscle atrophy [Unknown]
  - Sodium retention [Unknown]
  - Pollakiuria [Recovered/Resolved]
  - Infection susceptibility increased [Unknown]
  - Influenza like illness [Not Recovered/Not Resolved]
  - Dermatitis allergic [Not Recovered/Not Resolved]
  - Atrophy [Unknown]
  - Drug intolerance [Unknown]
  - Eosinopenia [Recovered/Resolved]
  - Increased appetite [Unknown]
  - Paraesthesia [Recovered/Resolved]
  - Oedema peripheral [Recovered/Resolved]
  - Anaphylactic reaction [Unknown]
  - Disturbance in attention [Not Recovered/Not Resolved]
  - Bone pain [Recovered/Resolved]
  - Application site irritation [Unknown]
  - Hyperhidrosis [Unknown]
  - Headache [Unknown]
  - Eczema [Unknown]
  - Asthenia [Recovered/Resolved]
  - Pyrexia [Not Recovered/Not Resolved]
  - Hydrometra [Recovered/Resolved]
  - Skin swelling [Recovered/Resolved]

NARRATIVE: CASE EVENT DATE: 201810
